FAERS Safety Report 19735405 (Version 2)
Quarter: 2021Q3

REPORT INFORMATION
  Report Type: Spontaneous
  Country: US (occurrence: US)
  Receive Date: 20210823
  Receipt Date: 20210923
  Transmission Date: 20211014
  Serious: Yes (Hospitalization, Other)
  Sender: FDA-Public Use
  Company Number: US-SA-2021SA277083

PATIENT
  Sex: Female

DRUGS (1)
  1. DUPIXENT [Suspect]
     Active Substance: DUPILUMAB
     Indication: ASTHMA
     Dosage: 300 MG, QOW
     Route: 058

REACTIONS (13)
  - Affective disorder [Recovering/Resolving]
  - Amnesia [Recovering/Resolving]
  - Dyspnoea [Recovering/Resolving]
  - Blood potassium abnormal [Unknown]
  - Pneumonia [Recovering/Resolving]
  - Electrolyte imbalance [Recovering/Resolving]
  - Gait inability [Recovering/Resolving]
  - Cerebrovascular accident [Recovering/Resolving]
  - COVID-19 [Unknown]
  - SARS-CoV-2 test positive [Unknown]
  - Chronic obstructive pulmonary disease [Recovering/Resolving]
  - Product use issue [Unknown]
  - Abdominal discomfort [Recovering/Resolving]
